FAERS Safety Report 5161630-5 (Version None)
Quarter: 2006Q4

REPORT INFORMATION
  Report Type: 
  Country: None (occurrence: None)
  Receive Date: 20061130
  Receipt Date: 20050503
  Transmission Date: 20070319
  Serious: No
  Sender: FDA-Public Use
  Company Number: US-BRISTOL-MYERS SQUIBB COMPANY-12954533

PATIENT
  Age: 58 Year
  Sex: Male
  Weight: 122 kg

DRUGS (2)
  1. GLUCOPHAGE XR [Suspect]
     Indication: HEPATIC STEATOSIS
     Dates: start: 20011201
  2. LEVOTHYROXINE SODIUM [Concomitant]
     Dates: start: 19980101

REACTIONS (1)
  - BLOOD THYROID STIMULATING HORMONE DECREASED [None]
